FAERS Safety Report 9175446 (Version 5)
Quarter: 2016Q2

REPORT INFORMATION
  Report Type: Spontaneous
  Country: US (occurrence: US)
  Receive Date: 20130320
  Receipt Date: 20160408
  Transmission Date: 20160815
  Serious: Yes (Disabling, Other)
  Sender: FDA-Public Use
  Company Number: US-009507513-1303USA009696

PATIENT
  Sex: Male

DRUGS (3)
  1. PROPECIA [Suspect]
     Active Substance: FINASTERIDE
     Indication: ANDROGENETIC ALOPECIA
     Dosage: 1 MG, QD
     Route: 048
     Dates: start: 200707, end: 200804
  2. FINASTERIDE. [Suspect]
     Active Substance: FINASTERIDE
     Indication: ANDROGENETIC ALOPECIA
     Dosage: UNK, QD
     Route: 048
     Dates: start: 200804, end: 200808
  3. PROPECIA [Suspect]
     Active Substance: FINASTERIDE
     Dosage: 1 MG, QD
     Route: 048
     Dates: start: 200808, end: 201207

REACTIONS (20)
  - Attention deficit/hyperactivity disorder [Unknown]
  - Libido decreased [Not Recovered/Not Resolved]
  - Ejaculation disorder [Not Recovered/Not Resolved]
  - Male genital atrophy [Not Recovered/Not Resolved]
  - Cognitive disorder [Not Recovered/Not Resolved]
  - Erectile dysfunction [Not Recovered/Not Resolved]
  - Male orgasmic disorder [Not Recovered/Not Resolved]
  - Anxiety [Not Recovered/Not Resolved]
  - Depression [Not Recovered/Not Resolved]
  - Scar [Unknown]
  - Anger [Unknown]
  - Limb discomfort [Unknown]
  - Drug administration error [Unknown]
  - Deafness [Recovered/Resolved]
  - Semen volume decreased [Not Recovered/Not Resolved]
  - Wrong technique in product usage process [Unknown]
  - Hair transplant [Unknown]
  - Ligament rupture [Unknown]
  - Nasal disorder [Unknown]
  - Head injury [Unknown]

NARRATIVE: CASE EVENT DATE: 2007
